FAERS Safety Report 5231010-2 (Version None)
Quarter: 2007Q1

REPORT INFORMATION
  Report Type: 
  Country: None (occurrence: None)
  Receive Date: 20070206
  Receipt Date: 20070131
  Transmission Date: 20070707
  Serious: Yes (Hospitalization)
  Sender: FDA-Public Use
  Company Number: GB-GLAXOSMITHKLINE-B0361332A

PATIENT
  Sex: Male

DRUGS (4)
  1. PAROXETINE HYDROCHLORIDE [Suspect]
     Indication: BIPOLAR DISORDER
     Route: 065
     Dates: start: 19990101, end: 20001001
  2. LITHIUM CARBONATE [Suspect]
     Dosage: 1000MG PER DAY
     Route: 065
     Dates: start: 19990101, end: 20000901
  3. RISPERDAL [Concomitant]
     Dosage: 1MG TWICE PER DAY
     Route: 065
  4. LORATADINE [Concomitant]
     Dosage: 10MG PER DAY
     Route: 065

REACTIONS (4)
  - DRUG WITHDRAWAL SYNDROME [None]
  - HYPOMANIA [None]
  - OBSESSIVE THOUGHTS [None]
  - SUICIDAL IDEATION [None]
